FAERS Safety Report 7650599-7 (Version None)
Quarter: 2011Q3

REPORT INFORMATION
  Report Type: 
  Country: None (occurrence: None)
  Receive Date: 20110802
  Receipt Date: 20110527
  Transmission Date: 20111222
  Serious: Yes (Hospitalization, Other)
  Sender: FDA-Public Use
  Company Number: FR-BAYER-201043281GPV

PATIENT
  Age: 68 Year
  Sex: Male
  Weight: 54 kg

DRUGS (21)
  1. SORAFENIB [Suspect]
     Indication: HEPATIC NEOPLASM MALIGNANT
     Route: 048
     Dates: start: 20100928, end: 20101018
  2. VITALIPIDE [Concomitant]
     Indication: WEIGHT DECREASED
     Dosage: 10 ML (DAILY DOSE), ,
     Dates: start: 20101118
  3. PLACEBO (12917) [Suspect]
     Indication: HEPATIC NEOPLASM MALIGNANT
     Dosage: 150 MG, QD
     Dates: start: 20100928, end: 20101007
  4. SORAFENIB [Suspect]
     Route: 048
     Dates: start: 20101027, end: 20101108
  5. DURAGESIC-100 [Concomitant]
     Indication: PAIN PROPHYLAXIS
     Dosage: 600 ?G (DAILY DOSE), ,
     Dates: start: 20101019
  6. LOVENOX [Concomitant]
     Indication: PORTAL VEIN THROMBOSIS
     Dosage: 1.2 ML (DAILY DOSE), , SUBCUTANEOUS
     Route: 058
     Dates: start: 20100901, end: 20101008
  7. DEXERYL [GLYCEROL,PARAFFIN, LIQUID,WHITE SOFT PARAFFIN] [Concomitant]
     Indication: PALMAR-PLANTAR ERYTHRODYSAESTHESIA SYNDROME
     Dosage: 2 APPLICATIONS PER DAY
     Route: 003
     Dates: start: 20100928
  8. MOTILIUM [Concomitant]
     Indication: ABDOMINAL PAIN
     Dosage: 30 MG (DAILY DOSE), , ORAL
     Route: 048
     Dates: start: 20100901
  9. DECAN NOS [Concomitant]
     Indication: WEIGHT DECREASED
     Dosage: 1 VIAL
     Route: 042
     Dates: start: 20101008, end: 20101019
  10. CERNEVIT-12 [Concomitant]
     Indication: WEIGHT DECREASED
     Dosage: 1 VIAL PER DAY
     Dates: start: 20101008, end: 20101019
  11. LASIX [Concomitant]
     Indication: OEDEMA
     Dosage: 20 MG (DAILY DOSE), ,
     Dates: start: 20101018, end: 20101028
  12. LASIX [Concomitant]
     Dosage: 20 MG (DAILY DOSE), ,
     Dates: start: 20101115
  13. MORPHINE SULFATE [Concomitant]
     Indication: TESTICULAR PAIN
     Dosage: 40 MG (DAILY DOSE), PRN,
     Dates: start: 20101019, end: 20101109
  14. XENETIX [Concomitant]
     Indication: SCAN WITH CONTRAST
     Dosage: XENETIX 350
     Dates: start: 20101117
  15. PLACEBO (12917) [Suspect]
     Dosage: 150 MG, QD
     Dates: start: 20101027, end: 20101108
  16. TRAMADOL HCL [Concomitant]
     Indication: ABDOMINAL PAIN
     Dosage: 200 MG (DAILY DOSE), PRN, ORAL
     Route: 048
     Dates: start: 20100901
  17. CONTRAST MEDIA [Concomitant]
     Indication: COMPUTERISED TOMOGRAM
     Dates: start: 20100906
  18. NEXIUM [Concomitant]
     Indication: ABDOMINAL PAIN
     Dosage: 40 MG (DAILY DOSE), ,
     Dates: start: 20101021
  19. RESOURCE ENERGY PLUS NOS [Concomitant]
     Indication: WEIGHT DECREASED
     Dosage: 2 PACKS
     Dates: start: 20101008
  20. OLICLINOMEL [Concomitant]
     Indication: WEIGHT DECREASED
     Dosage: 2000 ML (DAILY DOSE), , INTRAVENOUS
     Route: 042
     Dates: start: 20101008, end: 20101019
  21. INNOHEP [Concomitant]
     Indication: PORTAL VEIN THROMBOSIS
     Dosage: 0.4 ML (DAILY DOSE), , SUBCUTANEOUS
     Route: 058
     Dates: start: 20101008

REACTIONS (3)
  - PERIPHERAL MOTOR NEUROPATHY [None]
  - PERIPHERAL SENSORY NEUROPATHY [None]
  - INFUSION SITE EXTRAVASATION [None]
